FAERS Safety Report 9916849 (Version 1)
Quarter: 2014Q1

REPORT INFORMATION
  Report Type: Spontaneous
  Country: US (occurrence: US)
  Receive Date: 20140221
  Receipt Date: 20140221
  Transmission Date: 20141002
  Serious: No
  Sender: FDA-Public Use
  Company Number: US-MYLANLABS-2013S1000892

PATIENT
  Age: 49 Year
  Sex: Male
  Weight: 77.11 kg

DRUGS (6)
  1. HYDROCHLOROTHIAZIDE CAPSULES [Suspect]
     Indication: BLOOD PRESSURE INCREASED
     Route: 048
     Dates: start: 20121218
  2. TRAZODONE TABLETS, USP [Suspect]
     Indication: INSOMNIA
     Route: 048
     Dates: start: 20121218
  3. PEPCID [Concomitant]
     Indication: GASTROOESOPHAGEAL REFLUX DISEASE
     Route: 048
     Dates: start: 201211
  4. MULTIVITAMIN [Concomitant]
     Route: 048
     Dates: start: 201211
  5. COLACE [Concomitant]
     Indication: CONSTIPATION
     Route: 048
     Dates: start: 201211
  6. METAMUCIL [Concomitant]
     Indication: CONSTIPATION
     Route: 048
     Dates: start: 201211

REACTIONS (3)
  - Rash erythematous [Not Recovered/Not Resolved]
  - Rash pruritic [Not Recovered/Not Resolved]
  - Reaction to drug excipients [Not Recovered/Not Resolved]
